FAERS Safety Report 22216962 (Version 2)
Quarter: 2023Q2

REPORT INFORMATION
  Report Type: Spontaneous
  Country: ES (occurrence: None)
  Receive Date: 20230417
  Receipt Date: 20230512
  Transmission Date: 20230721
  Serious: Yes (Other)
  Sender: FDA-Public Use
  Company Number: ES-ROCHE-3331936

PATIENT
  Age: 77 Year
  Sex: Male

DRUGS (1)
  1. ESBRIET [Suspect]
     Active Substance: PIRFENIDONE
     Indication: Idiopathic pulmonary fibrosis
     Dosage: ASCENDING-DOSE REGIMEN FROM 267 MG EVERY 8 HOURS, CURRENTLY REACHING A DOSE OF 801 MG EVERY 8 HOURS
     Route: 048
     Dates: start: 20230310

REACTIONS (1)
  - Myasthenia gravis [Unknown]
